FAERS Safety Report 8033909-0 (Version None)
Quarter: 2012Q1

REPORT INFORMATION
  Report Type: 
  Country: None (occurrence: None)
  Receive Date: 20120110
  Receipt Date: 20120102
  Transmission Date: 20120608
  Serious: Yes (Death)
  Sender: FDA-Public Use
  Company Number: US-BAYER-2012-001479

PATIENT
  Age: 40 Year
  Sex: Female

DRUGS (7)
  1. SALICYLATES [Suspect]
  2. CITALOPRAM [Suspect]
  3. MIDAZOLAM [Suspect]
  4. DIPHENHYDRAMINE HCL [Suspect]
  5. VENLAFAXINE [Suspect]
  6. QUETIAPINE [Suspect]
  7. CARBAMAZEPINE [Suspect]

REACTIONS (4)
  - TOXICITY TO VARIOUS AGENTS [None]
  - COMPLETED SUICIDE [None]
  - CARDIAC ARREST [None]
  - RESPIRATORY ARREST [None]
